FAERS Safety Report 6633151-1 (Version None)
Quarter: 2010Q1

REPORT INFORMATION
  Report Type: 
  Country: None (occurrence: None)
  Receive Date: 20100312
  Receipt Date: 20100302
  Transmission Date: 20100710
  Serious: Yes (Hospitalization, Other)
  Sender: FDA-Public Use
  Company Number: SE-PFIZER INC-2010003449

PATIENT
  Sex: Male
  Weight: 62 kg

DRUGS (3)
  1. ZOLOFT [Suspect]
     Indication: AUTISM
     Dosage: 75 MG DAILY
     Route: 048
     Dates: start: 20080101
  2. ZOLOFT [Suspect]
     Indication: ANXIETY
  3. ZOLOFT [Suspect]
     Indication: SLEEP DISORDER

REACTIONS (2)
  - DUODENITIS [None]
  - PANCREATITIS [None]
